FAERS Safety Report 6201079-7 (Version None)
Quarter: 2009Q2

REPORT INFORMATION
  Report Type: 
  Country: None (occurrence: None)
  Receive Date: 20090526
  Receipt Date: 20090522
  Transmission Date: 20091009
  Serious: Yes (Hospitalization)
  Sender: FDA-Public Use
  Company Number: IT-BRISTOL-MYERS SQUIBB COMPANY-14634497

PATIENT
  Age: 75 Year
  Sex: Female

DRUGS (5)
  1. COUMADIN [Suspect]
     Indication: ATRIAL FIBRILLATION
     Dosage: INTERRUPTED ON 18-MAY-2009
     Route: 048
     Dates: start: 19990501
  2. OMEPRAZOLE [Concomitant]
     Route: 048
  3. XANAX [Concomitant]
     Dosage: TABS
     Route: 048
  4. RYTMONORM [Concomitant]
     Dosage: STRENGTH:425 MG CAPSULE
     Route: 048
  5. OLMESARTAN MEDOXOMIL + HCTZ [Concomitant]
     Route: 048

REACTIONS (3)
  - FALL [None]
  - HEAD INJURY [None]
  - SUBDURAL HAEMATOMA [None]
